FAERS Safety Report 25090765 (Version 1)
Quarter: 2025Q1

REPORT INFORMATION
  Report Type: Spontaneous
  Country: CN (occurrence: CN)
  Receive Date: 20250318
  Receipt Date: 20250318
  Transmission Date: 20250409
  Serious: Yes (Death, Life-Threatening, Hospitalization, Disabling, Other)
  Sender: PFIZER
  Company Number: CN-TAKEDA-2025TUS026226

PATIENT
  Age: 69 Year
  Sex: Female
  Weight: 55 kg

DRUGS (15)
  1. ADCETRIS [Suspect]
     Active Substance: BRENTUXIMAB VEDOTIN
     Indication: Diffuse large B-cell lymphoma
     Dosage: 100 MILLIGRAM, QD
     Route: 042
     Dates: start: 20250119
  2. ADCETRIS [Suspect]
     Active Substance: BRENTUXIMAB VEDOTIN
     Indication: Chronic lymphocytic leukaemia
     Dosage: 100 MILLIGRAM, QD
     Route: 042
     Dates: start: 20250206
  3. ADCETRIS [Suspect]
     Active Substance: BRENTUXIMAB VEDOTIN
     Indication: Richter^s syndrome
  4. XPOVIO [Suspect]
     Active Substance: SELINEXOR
     Indication: Diffuse large B-cell lymphoma
     Dosage: 40 MILLIGRAM, 1/WEEK
     Route: 048
     Dates: start: 20250118
  5. XPOVIO [Suspect]
     Active Substance: SELINEXOR
     Indication: Chronic lymphocytic leukaemia
     Dosage: 40 MILLIGRAM, 1/WEEK
     Route: 048
     Dates: start: 20250204
  6. XPOVIO [Suspect]
     Active Substance: SELINEXOR
     Indication: Richter^s syndrome
  7. ORELABRUTINIB [Suspect]
     Active Substance: ORELABRUTINIB
     Indication: Diffuse large B-cell lymphoma
     Dosage: 150 MILLIGRAM, QD
     Route: 048
     Dates: start: 20250120
  8. ORELABRUTINIB [Suspect]
     Active Substance: ORELABRUTINIB
     Indication: Chronic lymphocytic leukaemia
     Dosage: 150 MILLIGRAM, QD
     Route: 048
     Dates: start: 20250209
  9. ORELABRUTINIB [Suspect]
     Active Substance: ORELABRUTINIB
     Indication: Richter^s syndrome
  10. TEVIMBRA [Suspect]
     Active Substance: TISLELIZUMAB-JSGR
     Indication: Diffuse large B-cell lymphoma
     Dosage: 100 MILLIGRAM, QD
     Route: 041
     Dates: start: 20250119
  11. TEVIMBRA [Suspect]
     Active Substance: TISLELIZUMAB-JSGR
     Indication: Chronic lymphocytic leukaemia
  12. TEVIMBRA [Suspect]
     Active Substance: TISLELIZUMAB-JSGR
     Indication: Richter^s syndrome
  13. LENALIDOMIDE [Suspect]
     Active Substance: LENALIDOMIDE
     Indication: Diffuse large B-cell lymphoma
     Dosage: 10 MILLIGRAM, QD
     Route: 048
     Dates: start: 20250118
  14. LENALIDOMIDE [Suspect]
     Active Substance: LENALIDOMIDE
     Indication: Chronic lymphocytic leukaemia
     Dosage: 10 MILLIGRAM, QD
     Route: 048
     Dates: start: 20250131
  15. LENALIDOMIDE [Suspect]
     Active Substance: LENALIDOMIDE
     Indication: Richter^s syndrome

REACTIONS (5)
  - Neutropenic sepsis [Fatal]
  - Respiratory failure [Fatal]
  - Platelet count decreased [Fatal]
  - Anaemia [Fatal]
  - Pneumonia [Fatal]

NARRATIVE: CASE EVENT DATE: 20250228
